FAERS Safety Report 9011602 (Version 2)
Quarter: 2013Q2

REPORT INFORMATION
  Report Type: Report from Study
  Country: JP (occurrence: JP)
  Receive Date: 20130108
  Receipt Date: 20130627
  Transmission Date: 20140414
  Serious: Yes (Hospitalization)
  Sender: FDA-Public Use
  Company Number: JP-AMGEN-JPNCT2012084382

PATIENT
  Age: 71 Year
  Sex: Female
  Weight: 61 kg

DRUGS (18)
  1. DARBEPOETIN ALFA [Suspect]
     Indication: NEPHROGENIC ANAEMIA
     Dosage: 60 MUG, QD
     Route: 058
     Dates: start: 20110629, end: 20111116
  2. DARBEPOETIN ALFA [Suspect]
     Dosage: 60 MUG, QD
     Route: 058
     Dates: start: 20120118, end: 20120118
  3. DARBEPOETIN ALFA [Suspect]
     Dosage: 60 MUG, QD
     Route: 058
     Dates: start: 20120215, end: 20120531
  4. DARBEPOETIN ALFA [Suspect]
     Dosage: 60 MUG, QD
     Route: 058
     Dates: start: 20120627
  5. KREMEZIN [Concomitant]
     Dosage: UNK
     Route: 048
  6. DONASHIN [Concomitant]
     Dosage: UNK
     Route: 048
  7. KALIMATE [Concomitant]
     Dosage: UNK
     Route: 048
  8. AMLODIN [Concomitant]
     Dosage: UNK
     Route: 048
  9. FORSENID [Concomitant]
     Dosage: UNK
     Route: 048
  10. BASEN [Concomitant]
     Dosage: UNK
     Route: 048
  11. EQUA [Concomitant]
     Dosage: UNK
     Route: 048
  12. OLMETEC [Concomitant]
     Dosage: UNK
     Route: 048
  13. BARYTGEN [Concomitant]
     Indication: ENDOSCOPY
     Dosage: UNK
     Route: 048
  14. MUBEN [Concomitant]
     Indication: ENDOSCOPY
     Dosage: UNK
     Route: 048
  15. XYLOCAINE [Concomitant]
     Indication: ENDOSCOPY
     Dosage: UNK
     Route: 061
  16. LAXOBERON [Concomitant]
     Indication: ENDOSCOPY
     Dosage: UNK
     Route: 048
  17. GASMOTIN [Concomitant]
     Indication: ENDOSCOPY
     Dosage: UNK
     Route: 048
  18. KAYEXALATE [Concomitant]
     Indication: CONGENITAL CYSTIC KIDNEY DISEASE
     Dosage: UNK
     Route: 048

REACTIONS (1)
  - Rectal cancer [Recovering/Resolving]
